FAERS Safety Report 6897927-8 (Version None)
Quarter: 2010Q3

REPORT INFORMATION
  Report Type: 
  Country: None (occurrence: None)
  Receive Date: 20100802
  Receipt Date: 20070812
  Transmission Date: 20110219
  Serious: No
  Sender: FDA-Public Use
  Company Number: US-PFIZER INC-2007067740

PATIENT
  Sex: Female
  Weight: 86.4 kg

DRUGS (8)
  1. LYRICA [Suspect]
     Indication: NEUROPATHY PERIPHERAL
     Dates: start: 20070810
  2. RIBAVIRIN [Concomitant]
     Indication: HEPATITIS C
  3. INTERFERON [Concomitant]
     Indication: HEPATITIS C
  4. LEXAPRO [Concomitant]
  5. MULTI-VITAMINS [Concomitant]
  6. IBUPROFEN [Concomitant]
  7. TYLENOL [Concomitant]
  8. VICODIN [Concomitant]
     Indication: BONE PAIN

REACTIONS (2)
  - DIARRHOEA [None]
  - DRY MOUTH [None]
